FAERS Safety Report 9678427 (Version 2)
Quarter: 2014Q1

REPORT INFORMATION
  Report Type: Report from Study
  Country: US (occurrence: US)
  Receive Date: 20131108
  Receipt Date: 20140116
  Transmission Date: 20141002
  Serious: Yes (Hospitalization)
  Sender: FDA-Public Use
  Company Number: US-ABBVIE-13P-163-1165495-00

PATIENT
  Age: 44 Year
  Sex: Male
  Weight: 84.44 kg

DRUGS (11)
  1. HUMIRA [Suspect]
     Indication: COLITIS ULCERATIVE
     Dosage: LOADING DOSE
     Dates: start: 20131010, end: 20131010
  2. HUMIRA [Suspect]
     Route: 058
     Dates: end: 20131018
  3. HUMIRA [Suspect]
     Dates: start: 20131122
  4. PREDNISONE [Suspect]
     Indication: COLITIS ULCERATIVE
     Route: 048
     Dates: start: 20130716
  5. MULTIVITAMIN [Concomitant]
     Indication: VITAMIN SUPPLEMENTATION
  6. COENZYME Q10 [Concomitant]
     Indication: PRODUCT USED FOR UNKNOWN INDICATION
  7. VITAMIN B2 [Concomitant]
     Indication: PRODUCT USED FOR UNKNOWN INDICATION
  8. BENADRYL [Concomitant]
     Indication: INSOMNIA
  9. PROBIOTIC [Concomitant]
     Indication: PRODUCT USED FOR UNKNOWN INDICATION
  10. PEPCID AC [Concomitant]
     Indication: GASTROOESOPHAGEAL REFLUX DISEASE
  11. IMODIUM AD [Concomitant]
     Indication: DIARRHOEA

REACTIONS (6)
  - Chills [Recovered/Resolved]
  - Immunodeficiency [Recovered/Resolved]
  - Pneumonia [Recovering/Resolving]
  - Pneumonia legionella [Recovered/Resolved]
  - Sepsis [Recovered/Resolved]
  - Pyrexia [Recovered/Resolved]
